FAERS Safety Report 14134855 (Version 2)
Quarter: 2017Q4

REPORT INFORMATION
  Report Type: Report from Study
  Country: BR (occurrence: BR)
  Receive Date: 20171027
  Receipt Date: 20171101
  Transmission Date: 20180321
  Serious: Yes (Other)
  Sender: FDA-Public Use
  Company Number: BR-BAYER-2017-199016

PATIENT
  Age: 58 Year
  Sex: Male

DRUGS (3)
  1. ATENOLOL. [Concomitant]
     Active Substance: ATENOLOL
     Indication: HYPERTENSION
     Dosage: 2 DF, QD
  2. NEXAVAR [Suspect]
     Active Substance: SORAFENIB
     Indication: HEPATOCELLULAR CARCINOMA
     Dosage: 400 MG, QD
     Dates: start: 20170925
  3. NEXAVAR [Suspect]
     Active Substance: SORAFENIB
     Indication: HEPATOCELLULAR CARCINOMA
     Dosage: 800 MG, QD
     Route: 048
     Dates: start: 20170907, end: 2017

REACTIONS (8)
  - Yellow skin [None]
  - Gait inability [None]
  - Rash [None]
  - Skin exfoliation [Not Recovered/Not Resolved]
  - Burning sensation [None]
  - Pruritus genital [Not Recovered/Not Resolved]
  - Skin fissures [None]
  - Diarrhoea [None]
